FAERS Safety Report 13893419 (Version 1)
Quarter: 2017Q3

REPORT INFORMATION
  Report Type: Spontaneous
  Country: US (occurrence: US)
  Receive Date: 20170822
  Receipt Date: 20170822
  Transmission Date: 20171127
  Serious: No
  Sender: FDA-Public Use
  Company Number: US-ENDO PHARMACEUTICALS INC-2017-003312

PATIENT
  Age: 37 Year
  Sex: Male
  Weight: 131.52 kg

DRUGS (2)
  1. TESTOPEL [Suspect]
     Active Substance: TESTOSTERONE
     Indication: BLOOD TESTOSTERONE DECREASED
     Dosage: 75 MG, 12 PELLETS (900 MG)
     Route: 058
     Dates: start: 20161208, end: 20170426
  2. TESTOPEL [Suspect]
     Active Substance: TESTOSTERONE
     Dosage: 75 MG, 15 PELLETS (1125 MG)
     Route: 058
     Dates: start: 20170426

REACTIONS (2)
  - Prescribed overdose [Not Recovered/Not Resolved]
  - Drug ineffective [Unknown]

NARRATIVE: CASE EVENT DATE: 201701
